FAERS Safety Report 19355107 (Version 1)
Quarter: 2021Q2

REPORT INFORMATION
  Report Type: Spontaneous
  Country: US (occurrence: US)
  Receive Date: 20210528
  Receipt Date: 20210528
  Transmission Date: 20210717
  Serious: Yes (Other)
  Sender: FDA-Public Use
  Company Number: None

PATIENT
  Age: 64 Year
  Sex: Female
  Weight: 72.9 kg

DRUGS (10)
  1. ZANTAC 360 [Suspect]
     Active Substance: FAMOTIDINE
     Indication: GASTROOESOPHAGEAL REFLUX DISEASE
     Dosage: ?          QUANTITY:1 TABLET(S);?
     Route: 048
     Dates: start: 20210528, end: 20210528
  2. FLEXARIL [Concomitant]
  3. ANTACIDS [Concomitant]
     Active Substance: UNSPECIFIED INGREDIENT
  4. DAILY ASPIRIN [Concomitant]
  5. RANITIDINE. [Concomitant]
     Active Substance: RANITIDINE
  6. ANKLE BRACES [Concomitant]
  7. WALKS WITH A CANE [Concomitant]
  8. HYDROCODONE [Concomitant]
     Active Substance: HYDROCODONE
  9. OXCONTIN [Concomitant]
  10. GABAPENTIN. [Concomitant]
     Active Substance: GABAPENTIN

REACTIONS (1)
  - Product formulation issue [None]

NARRATIVE: CASE EVENT DATE: 20210528
